FAERS Safety Report 4723930-X (Version None)
Quarter: 2005Q3

REPORT INFORMATION
  Report Type: 
  Country: None (occurrence: None)
  Receive Date: 20050722
  Receipt Date: 20050715
  Transmission Date: 20060218
  Serious: Yes (Death, Other)
  Sender: FDA-Public Use
  Company Number: 11805

PATIENT
  Age: 66 Year
  Sex: Female

DRUGS (6)
  1. DOXIL [Suspect]
     Indication: MULTIPLE MYELOMA
     Dosage: 40 MG/M2 ONCE
     Dates: start: 20031001, end: 20031001
  2. VINCRISTINE [Suspect]
     Indication: MULTIPLE MYELOMA
     Dosage: 2 MG ONCE UNK
     Dates: start: 20031001, end: 20031001
  3. DEXAMETHASONE [Suspect]
     Indication: MULTIPLE MYELOMA
     Dosage: 40 MG DAILY
     Dates: start: 20031001, end: 20031001
  4. ALLOPURINOL [Concomitant]
  5. ACYCLOVIR [Concomitant]
  6. DIFLUCAN [Concomitant]

REACTIONS (8)
  - ABASIA [None]
  - BLOOD GLUCOSE ABNORMAL [None]
  - DEHYDRATION [None]
  - HEAT RASH [None]
  - HYPERNATRAEMIA [None]
  - ORAL INTAKE REDUCED [None]
  - PANCYTOPENIA [None]
  - SEPSIS [None]
